FAERS Safety Report 9441843 (Version 1)
Quarter: 2013Q3

REPORT INFORMATION
  Report Type: Spontaneous
  Country: PL (occurrence: None)
  Receive Date: 20130801
  Receipt Date: 20130801
  Transmission Date: 20140515
  Serious: Yes (Hospitalization, Other)
  Sender: FDA-Public Use
  Company Number: 2013GMK006267

PATIENT
  Age: 23 Year
  Sex: Female
  Weight: 54 kg

DRUGS (1)
  1. LAMOTRIX [Suspect]
     Indication: MAJOR DEPRESSION
     Route: 048
     Dates: end: 20130701

REACTIONS (5)
  - Drug reaction with eosinophilia and systemic symptoms [None]
  - Hepatitis [None]
  - Ascites [None]
  - Splenomegaly [None]
  - Pyrexia [None]
